FAERS Safety Report 7319811-8 (Version None)
Quarter: 2011Q1

REPORT INFORMATION
  Report Type: 
  Country: None (occurrence: None)
  Receive Date: 20110228
  Receipt Date: 20101005
  Transmission Date: 20110831
  Serious: No
  Sender: FDA-Public Use
  Company Number: A0885022A

PATIENT
  Age: 19 Year
  Sex: Female

DRUGS (3)
  1. AMBIEN [Concomitant]
  2. LAMICTAL [Suspect]
     Indication: BIPOLAR DISORDER
     Dosage: 25MG PER DAY
     Route: 048
     Dates: start: 20100924, end: 20101003
  3. ATIVAN [Concomitant]

REACTIONS (2)
  - FLUSHING [None]
  - RASH [None]
